FAERS Safety Report 6968924-9 (Version None)
Quarter: 2010Q3

REPORT INFORMATION
  Report Type: 
  Country: None (occurrence: None)
  Receive Date: 20100903
  Receipt Date: 20100903
  Transmission Date: 20110219
  Serious: Yes (Hospitalization)
  Sender: FDA-Public Use
  Company Number: None

PATIENT
  Age: 51 Year
  Sex: Male

DRUGS (1)
  1. ZOLPIDEM [Suspect]
     Indication: INSOMNIA
     Dosage: 10 MG EVERY DAY PO
     Route: 048
     Dates: start: 20100308, end: 20100310

REACTIONS (6)
  - CONDITION AGGRAVATED [None]
  - DEPRESSED MOOD [None]
  - DYSTONIA [None]
  - MUSCLE SPASTICITY [None]
  - NEUROPATHY PERIPHERAL [None]
  - PAIN [None]
